FAERS Safety Report 6753004-8 (Version None)
Quarter: 2010Q2

REPORT INFORMATION
  Report Type: 
  Country: None (occurrence: None)
  Receive Date: 20100603
  Receipt Date: 20100526
  Transmission Date: 20101027
  Serious: Yes (Other)
  Sender: FDA-Public Use
  Company Number: DE-JNJFOC-20100510234

PATIENT
  Sex: Male

DRUGS (2)
  1. TOPAMAX [Suspect]
     Indication: MYOCLONIC EPILEPSY
     Route: 048
  2. TOPAMAX [Suspect]
     Route: 048

REACTIONS (3)
  - CONVULSION [None]
  - METABOLIC ACIDOSIS [None]
  - NEPHROCALCINOSIS [None]
